FAERS Safety Report 17514255 (Version 1)
Quarter: 2020Q1

REPORT INFORMATION
  Report Type: Spontaneous
  Country: FR (occurrence: FR)
  Receive Date: 20200306
  Receipt Date: 20200306
  Transmission Date: 20200409
  Serious: Yes (Hospitalization, Other)
  Sender: FDA-Public Use
  Company Number: FR-AUROBINDO-AUR-APL-2020-010807

PATIENT
  Age: 20 Year
  Sex: Male

DRUGS (5)
  1. DAFALGAN CODEINE [Suspect]
     Active Substance: ACETAMINOPHEN\CODEINE PHOSPHATE
     Indication: TOOTHACHE
     Dosage: UNK
     Route: 048
     Dates: start: 20200110, end: 20200111
  2. METRONIDAZOLE. [Suspect]
     Active Substance: METRONIDAZOLE
     Indication: TOOTHACHE
     Dosage: UNK
     Route: 048
     Dates: start: 20200110, end: 20200111
  3. AMOXICILLIN. [Suspect]
     Active Substance: AMOXICILLIN
     Indication: TOOTHACHE
     Dosage: UNK
     Route: 048
     Dates: start: 20200110, end: 20200111
  4. SPIRAMYCIN [Suspect]
     Active Substance: SPIRAMYCIN
     Indication: TOOTHACHE
     Dosage: UNK
     Route: 048
     Dates: start: 20200110, end: 20200111
  5. CLAVULANIC ACID [Suspect]
     Active Substance: CLAVULANIC ACID
     Indication: TOOTHACHE
     Dosage: UNK
     Route: 048
     Dates: start: 20200110, end: 20200111

REACTIONS (1)
  - Pancreatitis [Recovering/Resolving]

NARRATIVE: CASE EVENT DATE: 20200111
